FAERS Safety Report 8336253-7 (Version None)
Quarter: 2012Q2

REPORT INFORMATION
  Report Type: 
  Country: None (occurrence: None)
  Receive Date: 20120504
  Receipt Date: 20120425
  Transmission Date: 20120825
  Serious: Yes (Hospitalization, Other)
  Sender: FDA-Public Use
  Company Number: JP-VERTEX PHARMACEUTICALS INC.-AE-2012-006229

PATIENT
  Age: 63 Year
  Sex: Female

DRUGS (11)
  1. TELAVIC (TELAPREVIR) [Suspect]
     Indication: HEPATITIS C
     Route: 048
     Dates: start: 20120117, end: 20120229
  2. LOXONIN [Concomitant]
     Route: 048
     Dates: start: 20120229
  3. PAXIL [Concomitant]
     Route: 048
  4. TELAVIC (TELAPREVIR) [Suspect]
     Route: 048
     Dates: start: 20120229
  5. REBETOL [Concomitant]
     Route: 048
     Dates: start: 20120229, end: 20120312
  6. REBETOL [Concomitant]
     Indication: HEPATITIS C
     Route: 048
     Dates: start: 20120117, end: 20120229
  7. REBETOL [Concomitant]
     Route: 048
     Dates: start: 20120409
  8. PEG-INTRON [Concomitant]
     Indication: HEPATITIS C
     Route: 051
     Dates: start: 20120117, end: 20120201
  9. PEG-INTRON [Concomitant]
     Route: 051
     Dates: start: 20120208, end: 20120215
  10. PEG-INTRON [Concomitant]
     Route: 051
     Dates: start: 20120229
  11. REBETOL [Concomitant]
     Route: 048
     Dates: start: 20120313, end: 20120408

REACTIONS (2)
  - MALAISE [None]
  - ANAEMIA [None]
